FAERS Safety Report 6213899-3 (Version None)
Quarter: 2009Q2

REPORT INFORMATION
  Report Type: 
  Country: None (occurrence: None)
  Receive Date: 20090602
  Receipt Date: 20090602
  Transmission Date: 20091009
  Serious: Yes (Life-Threatening, Hospitalization)
  Sender: FDA-Public Use
  Company Number: None

PATIENT
  Sex: Female
  Weight: 74.8435 kg

DRUGS (1)
  1. DIGOXIN [Suspect]

REACTIONS (7)
  - CARDIAC DISORDER [None]
  - CEREBROVASCULAR ACCIDENT [None]
  - COGNITIVE DISORDER [None]
  - DIZZINESS [None]
  - LABILE BLOOD PRESSURE [None]
  - MOBILITY DECREASED [None]
  - UNRESPONSIVE TO STIMULI [None]
